FAERS Safety Report 4675770-8 (Version None)
Quarter: 2005Q2

REPORT INFORMATION
  Report Type: 
  Country: None (occurrence: None)
  Receive Date: 20050527
  Receipt Date: 20050418
  Transmission Date: 20051028
  Serious: No
  Sender: FDA-Public Use
  Company Number: US-BRISTOL-MYERS SQUIBB COMPANY-12936233

PATIENT
  Age: 52 Year
  Sex: Female
  Weight: 67 kg

DRUGS (6)
  1. ERBITUX [Suspect]
     Indication: COLORECTAL CANCER METASTATIC
     Route: 042
     Dates: start: 20050301, end: 20050301
  2. BENADRYL [Concomitant]
     Indication: PREMEDICATION
     Route: 042
     Dates: start: 20050301, end: 20050301
  3. FLUOROURACIL [Concomitant]
     Route: 042
     Dates: start: 20050301, end: 20050301
  4. IRINOTECAN [Concomitant]
     Route: 042
     Dates: start: 20050301, end: 20050301
  5. LEUCOVORIN CALCIUM [Concomitant]
     Route: 042
     Dates: start: 20050301, end: 20050301
  6. SYNTHROID [Concomitant]

REACTIONS (1)
  - CONJUNCTIVITIS [None]
